FAERS Safety Report 11498334 (Version 3)
Quarter: 2015Q4

REPORT INFORMATION
  Report Type: Spontaneous
  Country: CA (occurrence: CA)
  Receive Date: 20150911
  Receipt Date: 20151130
  Transmission Date: 20160304
  Serious: Yes (Hospitalization, Other)
  Sender: FDA-Public Use
  Company Number: CA-ABBVIE-15P-028-1461166-00

PATIENT
  Sex: Male

DRUGS (1)
  1. DUODOPA [Suspect]
     Active Substance: CARBIDOPA\LEVODOPA
     Indication: PARKINSON^S DISEASE
     Dosage: 2 CASSETTES /DAY
     Route: 050
     Dates: start: 20140107

REACTIONS (4)
  - Pneumonia aspiration [Unknown]
  - Pneumonia [Recovered/Resolved]
  - Gastrooesophageal reflux disease [Unknown]
  - Dysphagia [Unknown]

NARRATIVE: CASE EVENT DATE: 20150905
